FAERS Safety Report 16969003 (Version 1)
Quarter: 2019Q4

REPORT INFORMATION
  Report Type: Spontaneous
  Country: EG (occurrence: EG)
  Receive Date: 20191029
  Receipt Date: 20191029
  Transmission Date: 20200122
  Serious: Yes (Other)
  Sender: FDA-Public Use
  Company Number: EG-HIKMA PHARMACEUTICALS USA INC.-EG-H14001-19-05486

PATIENT
  Age: 55 Year
  Sex: Male

DRUGS (4)
  1. CYTOPLATIN [Suspect]
     Active Substance: CISPLATIN
     Indication: LYMPHOMA
     Dosage: ON DAYS ONE AND FOUR;
     Route: 041
  2. TABINE [Suspect]
     Active Substance: CYTARABINE
     Indication: LYMPHOMA
     Dosage: ON DAY FIVE;
     Route: 041
  3. SOLU-MEDROL [Suspect]
     Active Substance: METHYLPREDNISOLONE SODIUM SUCCINATE
     Indication: LYMPHOMA
     Dosage: ON DAYS ONE AND FOUR;
     Route: 041
  4. ETOPUL [Suspect]
     Active Substance: ETOPOSIDE
     Indication: LYMPHOMA
     Dosage: ON DAYS ONE AND FOUR;
     Route: 041

REACTIONS (1)
  - Blood glucose increased [Unknown]
